FAERS Safety Report 19185068 (Version 1)
Quarter: 2021Q2

REPORT INFORMATION
  Report Type: Spontaneous
  Country: US (occurrence: US)
  Receive Date: 20210427
  Receipt Date: 20210427
  Transmission Date: 20210717
  Serious: No
  Sender: FDA-Public Use
  Company Number: US-SA-2021SA135721

PATIENT
  Age: 14 Year
  Sex: Female

DRUGS (1)
  1. DUPIXENT [Suspect]
     Active Substance: DUPILUMAB
     Indication: DERMATITIS ATOPIC
     Route: 050
     Dates: start: 202104

REACTIONS (5)
  - Skin fissures [Unknown]
  - Dry skin [Unknown]
  - Skin exfoliation [Unknown]
  - Eczema [Unknown]
  - Pruritus [Unknown]
